FAERS Safety Report 25264936 (Version 2)
Quarter: 2025Q2

REPORT INFORMATION
  Report Type: Spontaneous
  Country: BA (occurrence: BA)
  Receive Date: 20250502
  Receipt Date: 20250519
  Transmission Date: 20250716
  Serious: Yes (Other)
  Sender: AMGEN
  Company Number: BA-AMGEN-BIHSP2025083220

PATIENT
  Age: 61 Year
  Sex: Female

DRUGS (22)
  1. VECTIBIX [Suspect]
     Active Substance: PANITUMUMAB
     Indication: Adenocarcinoma of colon
     Dosage: 6 MILLIGRAM/KILOGRAM, Q2WK
     Route: 065
     Dates: start: 202212, end: 202405
  2. VECTIBIX [Suspect]
     Active Substance: PANITUMUMAB
     Indication: Clear cell papillary renal cell carcinoma
  3. ENALAPRIL MALEATE\HYDROCHLOROTHIAZIDE [Concomitant]
     Active Substance: ENALAPRIL MALEATE\HYDROCHLOROTHIAZIDE
     Route: 065
  4. DIAZEPAM [Concomitant]
     Active Substance: DIAZEPAM
     Route: 065
  5. ZOLOFT [Concomitant]
     Active Substance: SERTRALINE HYDROCHLORIDE
     Route: 065
  6. METFORMIN HYDROCHLORIDE [Concomitant]
     Active Substance: METFORMIN HYDROCHLORIDE
     Route: 065
  7. ATORVASTATIN [Concomitant]
     Active Substance: ATORVASTATIN
     Route: 065
  8. ASPIRIN [Concomitant]
     Active Substance: ASPIRIN
     Route: 065
  9. GLUCOSAMINE [Concomitant]
     Active Substance: GLUCOSAMINE
     Route: 065
  10. XANAX [Concomitant]
     Active Substance: ALPRAZOLAM
     Route: 065
  11. OXALIPLATIN [Concomitant]
     Active Substance: OXALIPLATIN
     Indication: Adenocarcinoma of colon
     Route: 065
  12. OXALIPLATIN [Concomitant]
     Active Substance: OXALIPLATIN
     Indication: Clear cell papillary renal cell carcinoma
     Dates: start: 202405
  13. CAPECITABINE [Concomitant]
     Active Substance: CAPECITABINE
     Indication: Adenocarcinoma of colon
     Route: 065
  14. CAPECITABINE [Concomitant]
     Active Substance: CAPECITABINE
     Indication: Clear cell papillary renal cell carcinoma
  15. LEUCOVORIN [Concomitant]
     Active Substance: LEUCOVORIN\LEUCOVORIN CALCIUM
     Indication: Adenocarcinoma of colon
     Route: 065
  16. LEUCOVORIN [Concomitant]
     Active Substance: LEUCOVORIN\LEUCOVORIN CALCIUM
     Indication: Clear cell papillary renal cell carcinoma
  17. FLUOROURACIL [Concomitant]
     Active Substance: FLUOROURACIL
     Indication: Adenocarcinoma of colon
     Route: 065
  18. FLUOROURACIL [Concomitant]
     Active Substance: FLUOROURACIL
     Indication: Clear cell papillary renal cell carcinoma
  19. IRINOTECAN [Concomitant]
     Active Substance: IRINOTECAN
     Indication: Adenocarcinoma of colon
     Route: 065
  20. IRINOTECAN [Concomitant]
     Active Substance: IRINOTECAN
     Indication: Clear cell papillary renal cell carcinoma
  21. BEVACIZUMAB [Concomitant]
     Active Substance: BEVACIZUMAB
     Dosage: 5 MILLIGRAM/KILOGRAM, Q2WK
     Route: 040
     Dates: start: 202405
  22. TIPIRACIL HYDROCHLORIDE\TRIFLURIDINE [Concomitant]
     Active Substance: TIPIRACIL HYDROCHLORIDE\TRIFLURIDINE
     Route: 065

REACTIONS (9)
  - Metastases to liver [Recovering/Resolving]
  - Metastases to lung [Recovering/Resolving]
  - Disease progression [Recovering/Resolving]
  - Paronychia [Recovering/Resolving]
  - Skin discolouration [Recovering/Resolving]
  - Dermatitis acneiform [Recovering/Resolving]
  - Rash pruritic [Recovering/Resolving]
  - Rash [Recovering/Resolving]
  - Inappropriate schedule of product administration [Recovering/Resolving]

NARRATIVE: CASE EVENT DATE: 20221201
